FAERS Safety Report 7487530-3 (Version None)
Quarter: 2011Q2

REPORT INFORMATION
  Report Type: 
  Country: None (occurrence: None)
  Receive Date: 20110518
  Receipt Date: 20110509
  Transmission Date: 20111010
  Serious: Yes (Hospitalization, Other)
  Sender: FDA-Public Use
  Company Number: US-ASTRAZENECA-2011SE27478

PATIENT
  Age: 72 Year
  Sex: Male

DRUGS (3)
  1. ZOCOR [Concomitant]
  2. CRESTOR [Suspect]
     Route: 048
  3. LIPITOR [Concomitant]

REACTIONS (1)
  - CARDIAC OPERATION [None]
